FAERS Safety Report 25129461 (Version 1)
Quarter: 2025Q1

REPORT INFORMATION
  Report Type: Spontaneous
  Country: US (occurrence: US)
  Receive Date: 20250327
  Receipt Date: 20250327
  Transmission Date: 20250409
  Serious: Yes (Death, Other)
  Sender: UNITED THERAPEUTICS
  Company Number: US-UNITED THERAPEUTICS-UNT-2025-009292

PATIENT
  Age: 4 Year
  Sex: Female

DRUGS (16)
  1. UNITUXIN [Suspect]
     Active Substance: DINUTUXIMAB
     Indication: Neuroblastoma
     Route: 041
  2. NAXITAMAB [Concomitant]
     Active Substance: NAXITAMAB
     Indication: Neuroblastoma
     Route: 041
  3. NAXITAMAB [Concomitant]
     Active Substance: NAXITAMAB
     Route: 041
  4. NAXITAMAB [Concomitant]
     Active Substance: NAXITAMAB
     Route: 041
  5. NAXITAMAB [Concomitant]
     Active Substance: NAXITAMAB
     Route: 041
  6. SARGRAMOSTIM [Concomitant]
     Active Substance: SARGRAMOSTIM
     Indication: Neuroblastoma
     Dosage: 250?G/M2, QD (CYCLE 1)
  7. SARGRAMOSTIM [Concomitant]
     Active Substance: SARGRAMOSTIM
     Dosage: 500?G/M2, QD (CYCLE 1)
  8. SARGRAMOSTIM [Concomitant]
     Active Substance: SARGRAMOSTIM
     Dosage: 250?G/M2, QD (CYCLE 2)
  9. SARGRAMOSTIM [Concomitant]
     Active Substance: SARGRAMOSTIM
     Dosage: 500?G/M2, QD (CYCLE 2)
  10. SARGRAMOSTIM [Concomitant]
     Active Substance: SARGRAMOSTIM
     Dosage: 250?G/M2, QD (CYCLE 3)
  11. SARGRAMOSTIM [Concomitant]
     Active Substance: SARGRAMOSTIM
     Dosage: 500?G/M2, QD (CYCLE 3)
     Dates: end: 2017
  12. SARGRAMOSTIM [Concomitant]
     Active Substance: SARGRAMOSTIM
     Dosage: 250?G/M2, QD (CYCLE 4)
  13. SARGRAMOSTIM [Concomitant]
     Active Substance: SARGRAMOSTIM
     Dosage: 500?G/M2, QD (CYCLE 4)
  14. ISOTRETINOIN [Concomitant]
     Active Substance: ISOTRETINOIN
     Indication: Neuroblastoma
     Dosage: 160 MG/M2 (14 DAYS/COURSE), QD
  15. IRINOTECAN HYDROCHLORIDE [Concomitant]
     Active Substance: IRINOTECAN HYDROCHLORIDE
     Indication: Neuroblastoma
  16. Irinotecan;Temozolomide [Concomitant]
     Indication: Neuroblastoma

REACTIONS (1)
  - Neuroblastoma [Fatal]
